FAERS Safety Report 15477891 (Version 1)
Quarter: 2018Q4

REPORT INFORMATION
  Report Type: Spontaneous
  Country: FR (occurrence: FR)
  Receive Date: 20181009
  Receipt Date: 20181009
  Transmission Date: 20190205
  Serious: Yes (Hospitalization)
  Sender: FDA-Public Use
  Company Number: FR-EMD SERONO-E2B_90061036

PATIENT
  Age: 37 Year
  Sex: Female

DRUGS (3)
  1. ORGALUTRAN [Suspect]
     Active Substance: GANIRELIX ACETATE
     Indication: CONTROLLED OVARIAN STIMULATION
     Dosage: FORM STRENGTH OF 0,25 MG/0,5 ML
     Route: 058
     Dates: start: 20180614, end: 20180617
  2. OVITRELLE [Suspect]
     Active Substance: CHORIOGONADOTROPIN ALFA
     Indication: OVULATION INDUCTION
     Route: 058
     Dates: start: 20180618, end: 20180618
  3. PUREGON                            /01348901/ [Suspect]
     Active Substance: FOLLITROPIN
     Indication: CONTROLLED OVARIAN STIMULATION
     Dosage: FORM STRENGTH OF 600 UI/0,72 ML
     Route: 058
     Dates: start: 20180609, end: 20180617

REACTIONS (5)
  - Abdominal distension [Recovered/Resolved]
  - Back pain [Recovered/Resolved]
  - Abdominal pain [Recovered/Resolved]
  - Ovarian hyperstimulation syndrome [Recovered/Resolved]
  - Pelvic fluid collection [Recovered/Resolved]

NARRATIVE: CASE EVENT DATE: 20180630
